FAERS Safety Report 4501253-1 (Version None)
Quarter: 2004Q4

REPORT INFORMATION
  Report Type: 
  Country: None (occurrence: None)
  Receive Date: 20041110
  Receipt Date: 20041029
  Transmission Date: 20050328
  Serious: No
  Sender: FDA-Public Use
  Company Number: 04H-056-0279444-00

PATIENT
  Sex: 0

DRUGS (3)
  1. LEUCOVORIN CALCIUM [Suspect]
     Indication: CHEMOTHERAPY
     Dosage: NOT REPORTED
  2. OXALIPLATIN [Suspect]
     Indication: CHEMOTHERAPY
     Dosage: NOT REPORTED
  3. FLUOROURACIL [Suspect]
     Indication: CHEMOTHERAPY
     Dosage: NOT REPORTED

REACTIONS (1)
  - THROMBOCYTOPENIA [None]
